FAERS Safety Report 8217820-8 (Version None)
Quarter: 2012Q1

REPORT INFORMATION
  Report Type: 
  Country: None (occurrence: None)
  Receive Date: 20120319
  Receipt Date: 20120312
  Transmission Date: 20120608
  Serious: Yes (Other)
  Sender: FDA-Public Use
  Company Number: US-TEVA-327922USA

PATIENT
  Sex: Female

DRUGS (2)
  1. ACTIQ [Suspect]
     Indication: NEURALGIA
     Route: 002
  2. FENTANYL [Concomitant]

REACTIONS (2)
  - SUICIDAL IDEATION [None]
  - OFF LABEL USE [None]
